FAERS Safety Report 8092729-1 (Version None)
Quarter: 2012Q1

REPORT INFORMATION
  Report Type: 
  Country: None (occurrence: None)
  Receive Date: 20120130
  Receipt Date: 20120130
  Transmission Date: 20120608
  Serious: Yes (Hospitalization)
  Sender: FDA-Public Use
  Company Number: None

PATIENT
  Age: 76 Year
  Sex: Male
  Weight: 79.6 kg

DRUGS (1)
  1. LISINOPRIL [Suspect]
     Indication: HYPERTENSION
     Dosage: 10 MG EVERY DAY PO
     Route: 048
     Dates: start: 20111204, end: 20111206

REACTIONS (4)
  - RENAL FAILURE ACUTE [None]
  - HYPOVOLAEMIA [None]
  - HYPOTENSION [None]
  - RENAL TUBULAR NECROSIS [None]
